FAERS Safety Report 5471568-1 (Version None)
Quarter: 2007Q3

REPORT INFORMATION
  Report Type: 
  Country: None (occurrence: None)
  Receive Date: 20070928
  Receipt Date: 20070118
  Transmission Date: 20080115
  Serious: No
  Sender: FDA-Public Use
  Company Number: US-BRISTOL-MYERS SQUIBB COMPANY-13646880

PATIENT
  Age: 93 Year
  Sex: Female

DRUGS (16)
  1. DEFINITY [Suspect]
     Indication: ECHOCARDIOGRAM
     Route: 042
     Dates: start: 20070116
  2. NORVASC [Concomitant]
  3. CELEXA [Concomitant]
  4. VICODIN [Concomitant]
  5. COUMADIN [Concomitant]
  6. LASIX [Concomitant]
  7. TOPROL-XL [Concomitant]
  8. SYNTHROID [Concomitant]
  9. LORAZEPAM [Concomitant]
  10. ASPIRIN [Concomitant]
  11. FERROUS SULFATE TAB [Concomitant]
  12. TRAMADOL HCL [Concomitant]
  13. SEROQUEL [Concomitant]
  14. ACETAMINOPHEN [Concomitant]
  15. CYANOCOBALAMIN [Concomitant]
  16. REQUIP [Concomitant]

REACTIONS (1)
  - BACK PAIN [None]
